FAERS Safety Report 20095916 (Version 7)
Quarter: 2022Q1

REPORT INFORMATION
  Report Type: Report from Study
  Country: MX (occurrence: MX)
  Receive Date: 20211122
  Receipt Date: 20220206
  Transmission Date: 20220423
  Serious: Yes (Hospitalization, Other)
  Sender: FDA-Public Use
  Company Number: MX-NOVARTISPH-NVSC2021MX265760

PATIENT
  Age: 65 Year
  Sex: Female
  Weight: 54 kg

DRUGS (5)
  1. FEMARA [Suspect]
     Active Substance: LETROZOLE
     Indication: Breast cancer
     Dosage: 2.5 MG, QD (1 DF (2.5 MG)
     Route: 048
     Dates: start: 202008
  2. GINKGO [Concomitant]
     Active Substance: GINKGO
     Indication: Asthenia
     Dosage: 1 DOSAGE FORM (240 MG), QD (PATIENT DOES NOT REMEMBER)
     Route: 048
     Dates: start: 202111
  3. FLUIDBASE [Concomitant]
     Indication: Skin discolouration
     Dosage: 1 DOSAGE FORM (30 ML), QD
     Route: 058
     Dates: start: 20220120
  4. CORTISONE [Concomitant]
     Active Substance: CORTISONE
     Indication: Pneumonitis
     Dosage: 1 DOSAGE FORM, QD (40 ML)
     Route: 042
     Dates: start: 20210917
  5. CORTISONE [Concomitant]
     Active Substance: CORTISONE
     Dosage: 2.5 ML, QD
     Route: 042

REACTIONS (15)
  - Pneumonia [Recovered/Resolved]
  - Pulmonary oedema [Unknown]
  - Neovascular age-related macular degeneration [Unknown]
  - Immunodeficiency [Unknown]
  - Kidney infection [Recovered/Resolved]
  - Blood cholesterol abnormal [Not Recovered/Not Resolved]
  - Osteopenia [Not Recovered/Not Resolved]
  - Solar lentigo [Not Recovered/Not Resolved]
  - Ingrowing nail [Not Recovered/Not Resolved]
  - Osteoarthritis [Not Recovered/Not Resolved]
  - Movement disorder [Unknown]
  - Swelling face [Unknown]
  - Limb discomfort [Not Recovered/Not Resolved]
  - Vision blurred [Not Recovered/Not Resolved]
  - Weight decreased [Recovered/Resolved]

NARRATIVE: CASE EVENT DATE: 20201101
